FAERS Safety Report 9907268 (Version 1)
Quarter: 2014Q1

REPORT INFORMATION
  Report Type: Spontaneous
  Country: US (occurrence: US)
  Receive Date: 20140218
  Receipt Date: 20140218
  Transmission Date: 20141002
  Serious: Yes (Other)
  Sender: FDA-Public Use
  Company Number: US-MYLANLABS-2014S1002955

PATIENT
  Age: 47 Year
  Sex: Male

DRUGS (1)
  1. EPINEPHRINE [Suspect]
     Indication: ACCIDENTAL EXPOSURE TO PRODUCT

REACTIONS (6)
  - Pain [Recovered/Resolved]
  - Injection site pallor [Recovered/Resolved]
  - Injection site coldness [Recovered/Resolved]
  - Accidental exposure to product [Recovered/Resolved]
  - Injection site injury [Recovered/Resolved]
  - Injection site discolouration [Recovered/Resolved]
